FAERS Safety Report 8414980-0 (Version None)
Quarter: 2012Q2

REPORT INFORMATION
  Report Type: 
  Country: None (occurrence: None)
  Receive Date: 20120530
  Receipt Date: 20120517
  Transmission Date: 20120825
  Serious: Yes (Other)
  Sender: FDA-Public Use
  Company Number: 2012SP016703

PATIENT
  Age: 67 Year
  Sex: Female
  Weight: 130 kg

DRUGS (8)
  1. RIBAVIRIN [Suspect]
     Indication: HEPATITIS C
     Dosage: 1000 MG; QD;PO
     Route: 048
     Dates: start: 20111018
  2. ALBUTEROL [Concomitant]
  3. ZOLPIDEM [Concomitant]
  4. TEGOBUVIR [Suspect]
     Indication: HEPATITIS C
     Dosage: 30 MG; Q12H; PO
     Route: 048
     Dates: start: 20111018
  5. FLUTICASONE PROPIONATE [Concomitant]
  6. GS-5885 [Suspect]
     Indication: HEPATITIS C
     Dosage: 30 MG; QD;PO
     Route: 048
     Dates: start: 20111018
  7. DILTIAZEM [Concomitant]
  8. GS-9451 [Suspect]
     Indication: HEPATITIS C
     Dosage: 200 MG;QD; PO
     Route: 048
     Dates: start: 20111018

REACTIONS (3)
  - IRITIS [None]
  - VITRITIS [None]
  - CATARACT NUCLEAR [None]
